FAERS Safety Report 9443122 (Version 4)
Quarter: 2013Q4

REPORT INFORMATION
  Report Type: Spontaneous
  Country: CA (occurrence: CA)
  Receive Date: 20130806
  Receipt Date: 20131018
  Transmission Date: 20140711
  Serious: Yes (Hospitalization, Other)
  Sender: FDA-Public Use
  Company Number: CA-ROCHE-1255971

PATIENT
  Age: 31 Year
  Sex: Male

DRUGS (6)
  1. XOLAIR [Suspect]
     Indication: ASTHMA
     Route: 058
     Dates: start: 20130304
  2. XOLAIR [Suspect]
     Route: 058
     Dates: start: 20130920
  3. SYMBICORT [Concomitant]
  4. SINGULAIR [Concomitant]
  5. SPIRIVA [Concomitant]
  6. BRICANYL [Concomitant]

REACTIONS (5)
  - Bacterial infection [Unknown]
  - Hepatitis viral [Recovered/Resolved]
  - Nasopharyngitis [Unknown]
  - Nuchal rigidity [Unknown]
  - Injection site bruising [Unknown]
